FAERS Safety Report 18073925 (Version 6)
Quarter: 2021Q2

REPORT INFORMATION
  Report Type: Spontaneous
  Country: JP (occurrence: JP)
  Receive Date: 20200727
  Receipt Date: 20210402
  Transmission Date: 20210717
  Serious: Yes (Life-Threatening, Hospitalization, Disabling, Other)
  Sender: FDA-Public Use
  Company Number: JP-AMGEN-JPNSP2020118997

PATIENT
  Age: 77 Year
  Sex: Male
  Weight: 59 kg

DRUGS (77)
  1. SYMBICORT [Concomitant]
     Active Substance: BUDESONIDE\FORMOTEROL FUMARATE DIHYDRATE
     Indication: BRONCHIAL DISORDER
     Dosage: 4 TIMES OF INHALATION
     Dates: start: 20170807, end: 2020
  2. NICORANDIL [Concomitant]
     Active Substance: NICORANDIL
     Indication: CORONARY ARTERY DILATATION
     Dosage: 2.5 MILLIGRAM, QD
     Dates: start: 20150223, end: 20200130
  3. NICORANDIL [Concomitant]
     Active Substance: NICORANDIL
     Dosage: 5 MILLIGRAM, BID
     Dates: start: 20200325, end: 20200401
  4. RABEPRAZOLE NA [Concomitant]
     Active Substance: RABEPRAZOLE SODIUM
     Indication: PROPHYLAXIS AGAINST GASTROINTESTINAL ULCER
     Dosage: 10 MILLIGRAM, QD
     Dates: start: 20140204, end: 20200316
  5. LOXOPROFEN NA [Concomitant]
     Active Substance: LOXOPROFEN SODIUM
     Indication: CARDIAC FAILURE CONGESTIVE
     Dosage: 2 DOSAGE FORM
     Route: 048
     Dates: start: 20200211
  6. AMITIZA [Concomitant]
     Active Substance: LUBIPROSTONE
     Indication: CONSTIPATION
     Dosage: 48 MICROGRAM, QD
     Dates: start: 20200316, end: 20200316
  7. FEXOFENADINE HYDROCHLORIDE. [Concomitant]
     Active Substance: FEXOFENADINE HYDROCHLORIDE
     Indication: HYPERSENSITIVITY
     Dosage: 120 MILLIGRAM, BID
     Dates: start: 20200317
  8. GOOFICE [Concomitant]
     Active Substance: ELOBIXIBAT
     Indication: CONSTIPATION
     Dosage: 10 MILLIGRAM, QD
     Dates: start: 20200402
  9. BETAMETHASONE. [Concomitant]
     Active Substance: BETAMETHASONE
     Dosage: 1.5 MILLIGRAM, QD
     Dates: start: 20200509, end: 20200514
  10. BETAMETHASONE. [Concomitant]
     Active Substance: BETAMETHASONE
     Dosage: 1.0 MILLIGRAM, QD
     Dates: start: 20200515, end: 20200521
  11. ORADOL [DOMIPHEN BROMIDE] [Concomitant]
     Indication: STOMATITIS
     Dosage: 2 MILLIGRAM, QID
     Dates: start: 20200205, end: 20200212
  12. AMLODIPINE [AMLODIPINE BESILATE] [Concomitant]
     Active Substance: AMLODIPINE BESYLATE
     Indication: HYPERTENSION
     Dosage: 1.25 MILLIGRAM, QD
     Dates: start: 20180109
  13. AMITIZA [Concomitant]
     Active Substance: LUBIPROSTONE
     Dosage: 48 MICROGRAM, BID
     Dates: start: 20200324, end: 20200325
  14. IMIDAPRIL HYDROCHLORIDE [Concomitant]
     Active Substance: IMIDAPRIL HYDROCHLORIDE
     Indication: HYPERTENSION
     Dosage: 1.25 MILLIGRAM, QD
     Dates: start: 20200317
  15. PREDNISOLONE. [Concomitant]
     Active Substance: PREDNISOLONE
     Dosage: 10 MILLIGRAM, QD
     Dates: start: 20200409, end: 20200409
  16. BETAMETHASONE. [Concomitant]
     Active Substance: BETAMETHASONE
     Dosage: 1 MILLIGRAM, QD
     Dates: start: 20200428, end: 20200501
  17. BETAMETHASONE. [Concomitant]
     Active Substance: BETAMETHASONE
     Dosage: 1.5 MILLIGRAM, QD
     Dates: start: 20200619, end: 20200709
  18. MELACT [Concomitant]
     Indication: WOUND
     Dosage: 300 MILLIGRAM, TID
     Dates: start: 20200807, end: 20200811
  19. NICORANDIL [Concomitant]
     Active Substance: NICORANDIL
     Dosage: 5 MILLIGRAM, BID
     Dates: start: 20200408, end: 20200511
  20. DIART [Concomitant]
     Active Substance: AZOSEMIDE
     Dosage: 30 MILLIGRAM, QD (3 TIMES A WEEK)
     Dates: start: 20200512
  21. PREDNISOLONE. [Concomitant]
     Active Substance: PREDNISOLONE
     Dosage: 05 MILLIGRAM, BID
     Dates: start: 20200410, end: 2020
  22. PREDNISOLONE. [Concomitant]
     Active Substance: PREDNISOLONE
     Dosage: 10 MILLIGRAM, QD
     Dates: start: 20200625, end: 20200701
  23. PREDNISOLONE. [Concomitant]
     Active Substance: PREDNISOLONE
     Dosage: 5 MILLIGRAM, QD
     Dates: start: 20200807, end: 20200831
  24. BETAMETHASONE. [Concomitant]
     Active Substance: BETAMETHASONE
     Dosage: 2 MILLIGRAM, QD
     Dates: start: 20200416, end: 20200420
  25. CILNIDIPINE [Concomitant]
     Active Substance: CILNIDIPINE
     Indication: HYPERTENSION
     Dosage: 5 MILLIGRAM, BID
     Dates: start: 20200502, end: 20200507
  26. LYRICA [Concomitant]
     Active Substance: PREGABALIN
     Dosage: 50 MILLIGRAM, BID
     Dates: start: 20200210, end: 20200210
  27. SYMBICORT [Concomitant]
     Active Substance: BUDESONIDE\FORMOTEROL FUMARATE DIHYDRATE
     Indication: ASTHMA
     Dosage: THREE INHALATIONS IN MORNING/THREE BEFORE BED/ONE AT THE TIME OF ATTACK
     Dates: start: 20200210, end: 202002
  28. SYMBICORT [Concomitant]
     Active Substance: BUDESONIDE\FORMOTEROL FUMARATE DIHYDRATE
     Dosage: 3 TIMES OF INHALATION
     Dates: start: 20200308
  29. NICORANDIL [Concomitant]
     Active Substance: NICORANDIL
     Dosage: 10 MILLIGRAM, BID
     Dates: start: 20200131, end: 20200315
  30. SPIRONOLACTONE. [Concomitant]
     Active Substance: SPIRONOLACTONE
     Indication: CARDIAC FAILURE
     Dosage: 50 MILLIGRAM, QD (SINCE AROUND NOV/2017)
     Dates: start: 2017, end: 20200323
  31. PIMOBENDAN [Concomitant]
     Active Substance: PIMOBENDAN
     Indication: CARDIAC FAILURE
     Dosage: 5 MILLIGRAM, BID
     Dates: start: 20200317, end: 20200511
  32. EFIENT [Concomitant]
     Active Substance: PRASUGREL HYDROCHLORIDE
     Indication: THROMBOSIS PROPHYLAXIS
     Dosage: 3.75 MILLIGRAM, QD
     Dates: start: 20200317
  33. SAMSCA [Concomitant]
     Active Substance: TOLVAPTAN
     Indication: POLYURIA
     Dosage: 7.5 MILLIGRAM, QD (MON, TUES, SAT)
     Dates: start: 20200317
  34. DIART [Concomitant]
     Active Substance: AZOSEMIDE
     Dosage: 60 MILLIGRAM, QD
     Dates: start: 20200415, end: 20200507
  35. PROPETO [Concomitant]
     Active Substance: PETROLATUM
     Indication: SKIN DISORDER
     Dosage: 20 GRAM, AS NECESSARY
     Dates: start: 20200323
  36. PREDNISOLONE. [Concomitant]
     Active Substance: PREDNISOLONE
     Dosage: 7.5 MILLIGRAM, QD
     Dates: start: 20200716, end: 20200806
  37. PREDNISOLONE. [Concomitant]
     Active Substance: PREDNISOLONE
     Dosage: 2.5 MILLIGRAM, QD
     Dates: start: 20200924, end: 20201013
  38. EVENITY [Suspect]
     Active Substance: ROMOSOZUMAB-AQQG
     Indication: PRODUCT USED FOR UNKNOWN INDICATION
     Dosage: 210 MILLIGRAM
     Route: 058
     Dates: start: 20190807, end: 20200205
  39. LYRICA [Concomitant]
     Active Substance: PREGABALIN
     Indication: CARDIAC FAILURE CONGESTIVE
     Dosage: 50 MILLIGRAM, BID
     Dates: start: 20200209, end: 20200209
  40. LYRICA [Concomitant]
     Active Substance: PREGABALIN
     Indication: ACUTE MYOCARDIAL INFARCTION
     Dosage: 100 MILLIGRAM, QID
     Dates: start: 20200210
  41. ETIZOLAM [Concomitant]
     Active Substance: ETIZOLAM
     Indication: INSOMNIA
     Dosage: 0.5 MILLIGRAM, QD
     Dates: start: 20180406
  42. LIMAPROST ALFADEX [Concomitant]
     Active Substance: LIMAPROST
     Indication: LUMBAR SPINAL STENOSIS
     Dosage: 5 MICROGRAM, TID
     Dates: start: 20150902, end: 20200213
  43. MAGMITT [Concomitant]
     Active Substance: MAGNESIUM OXIDE
     Indication: CONSTIPATION
     Dosage: SINCE AROUND 2009, 250 MILLIGRAM, AS NECESSARY
     Dates: end: 20200804
  44. DIART [Concomitant]
     Active Substance: AZOSEMIDE
     Indication: POLYURIA
     Dosage: 60 MILLIGRAM, QD
     Dates: start: 20200314, end: 20200316
  45. PREDNISOLONE. [Concomitant]
     Active Substance: PREDNISOLONE
     Indication: HYPERSENSITIVITY
     Dosage: 30 MILLIGRAM, BID
     Dates: start: 20200408, end: 20200408
  46. BETAMETHASONE. [Concomitant]
     Active Substance: BETAMETHASONE
     Dosage: 2 MILLIGRAM, QD
     Dates: start: 20200502, end: 20200508
  47. AZOSEMIDE [Concomitant]
     Active Substance: AZOSEMIDE
     Indication: CARDIAC FAILURE
     Dosage: 30 MILLIGRAM, QD
     Dates: start: 20200930
  48. POSTERISAN [HYDROCORTISONE] [Concomitant]
     Indication: HAEMORRHOIDS
     Dosage: OPTIMUM DOSE, AS NECESSARY
     Dates: start: 20200510
  49. NICORANDIL [Concomitant]
     Active Substance: NICORANDIL
     Dosage: 10 MILLIGRAM, BID
     Dates: start: 20200317, end: 20200324
  50. NICORANDIL [Concomitant]
     Active Substance: NICORANDIL
     Dosage: 10 MILLIGRAM, QID
     Dates: start: 20200512
  51. PICOSULFATE NA [Concomitant]
     Active Substance: SODIUM PICOSULFATE
     Indication: CONSTIPATION
     Dosage: UNK UNK, AS NECESSARY
     Dates: start: 20200316
  52. ROSUVASTATIN. [Concomitant]
     Active Substance: ROSUVASTATIN
     Indication: HYPERLIPIDAEMIA
     Dosage: 2.5 MILLIGRAM, QD
     Dates: start: 20200317
  53. DIART [Concomitant]
     Active Substance: AZOSEMIDE
     Dosage: 30 MILLIGRAM, QD (4 TIMES A WEEK)
     Dates: start: 20200508, end: 20200511
  54. PREDNISOLONE. [Concomitant]
     Active Substance: PREDNISOLONE
     Dosage: 7.5 MILLIGRAM, QD
     Dates: start: 20200904, end: 20200923
  55. BETAMETHASONE. [Concomitant]
     Active Substance: BETAMETHASONE
     Dosage: 0.5 MILLIGRAM, QD
     Dates: start: 20200512, end: 20200618
  56. CYMBALTA [Concomitant]
     Active Substance: DULOXETINE HYDROCHLORIDE
     Indication: PAIN
     Dosage: 60 MILLIGRAM, QD
     Dates: start: 20190826
  57. MAGMITT [Concomitant]
     Active Substance: MAGNESIUM OXIDE
     Dosage: 330 MILLIGRAM, AS NECESSARY
     Dates: start: 20200805
  58. LANSOPRAZOLE. [Concomitant]
     Active Substance: LANSOPRAZOLE
     Dosage: 15 MILLIGRAM, QD
     Dates: start: 20151102
  59. PIMOBENDAN [Concomitant]
     Active Substance: PIMOBENDAN
     Dosage: 3.75 MILLIGRAM, BID
     Dates: start: 20200512
  60. BETAMETHASONE. [Concomitant]
     Active Substance: BETAMETHASONE
     Indication: HYPERSENSITIVITY
     Dosage: 4 MILLIGRAM, QD
     Dates: start: 20200413, end: 20200414
  61. BETAMETHASONE. [Concomitant]
     Active Substance: BETAMETHASONE
     Dosage: 3 MILLIGRAM, QD
     Dates: start: 20200415, end: 20200415
  62. LYRICA [Concomitant]
     Active Substance: PREGABALIN
     Indication: PAIN
     Dosage: 75 MILLIGRAM, TID
     Dates: start: 20130702, end: 20200209
  63. SYMBICORT [Concomitant]
     Active Substance: BUDESONIDE\FORMOTEROL FUMARATE DIHYDRATE
     Dosage: TWO INHALATIONS IN THE MORNING, TWO BEFORE BED
     Dates: start: 20200212, end: 2020
  64. LOXOPROFEN NA [Concomitant]
     Active Substance: LOXOPROFEN SODIUM
     Indication: PAIN
     Dosage: SINCE AROUND SEP/2018, 60 MILLIGRAM
     Dates: start: 2018
  65. PRIMPERAN [Concomitant]
     Active Substance: METOCLOPRAMIDE HYDROCHLORIDE
     Indication: NAUSEA
     Dosage: 10 MILLIGRAM, QD
     Dates: start: 20200316, end: 20200325
  66. SPIRONOLACTONE. [Concomitant]
     Active Substance: SPIRONOLACTONE
     Dosage: 25 MILLIGRAM, QD
     Dates: start: 20200324, end: 20200511
  67. SPIRONOLACTONE. [Concomitant]
     Active Substance: SPIRONOLACTONE
     Dosage: 12.5 UNK
     Dates: start: 20200512
  68. FEBURIC [Concomitant]
     Active Substance: FEBUXOSTAT
     Indication: HYPERLIPIDAEMIA
     Dosage: 10 MILLIGRAM, QD
     Dates: start: 20200317
  69. EDIROL [Concomitant]
     Active Substance: ELDECALCITOL
     Indication: OSTEOPOROSIS
     Dosage: 0.5 MICROGRAM, QD
     Dates: start: 20170407
  70. LUNESTA [Concomitant]
     Active Substance: ESZOPICLONE
     Indication: INSOMNIA
     Dosage: 0.5 MILLIGRAM, QD
     Dates: start: 20200317
  71. DIART [Concomitant]
     Active Substance: AZOSEMIDE
     Dosage: 30 MILLIGRAM, QD
     Dates: start: 20200317, end: 20200414
  72. NITROPEN [Concomitant]
     Active Substance: NITROGLYCERIN
     Indication: CORONARY ARTERY DILATATION
     Dosage: 0.3 MILLIGRAM, AS NECESSARY (SINGLE DOSE FROM 10 PRESCRIBED DOSES)
     Dates: start: 20200403
  73. PREDNISOLONE. [Concomitant]
     Active Substance: PREDNISOLONE
     Dosage: 2.5 MILLIGRAM, QD
     Dates: start: 20200901, end: 20200903
  74. CILNIDIPINE [Concomitant]
     Active Substance: CILNIDIPINE
     Dosage: 5 MILLIGRAM, BID
     Dates: start: 20200519, end: 2020
  75. ALESION [Concomitant]
     Active Substance: EPINASTINE HYDROCHLORIDE
     Indication: HYPERSENSITIVITY
     Dosage: OPTIMUM DOSE, QID
  76. INDOMETACIN PAP BMD [Concomitant]
     Indication: PAIN
     Dosage: SINGLE DOSE, AS NECESSARY
     Dates: end: 20200325
  77. LECICARBON [SODIUM BICARBONATE;SODIUM PHOSPHATE MONOBASIC (ANHYDROUS)] [Concomitant]
     Indication: DIARRHOEA
     Dosage: SINGLE DOSE
     Dates: start: 20200322

REACTIONS (3)
  - Asthma [Recovered/Resolved]
  - Acute myocardial infarction [Recovered/Resolved with Sequelae]
  - Cardiac failure congestive [Recovered/Resolved with Sequelae]

NARRATIVE: CASE EVENT DATE: 202001
